FAERS Safety Report 22241061 (Version 1)
Quarter: 2023Q2

REPORT INFORMATION
  Report Type: Spontaneous
  Country: RO (occurrence: RO)
  Receive Date: 20230421
  Receipt Date: 20230421
  Transmission Date: 20230722
  Serious: Yes (Other)
  Sender: FDA-Public Use
  Company Number: RO-AMGEN-ROUSP2023060215

PATIENT
  Age: 73 Year
  Sex: Male

DRUGS (12)
  1. OXALIPLATIN [Suspect]
     Active Substance: OXALIPLATIN
     Indication: Colorectal cancer metastatic
     Dosage: 85 MILLIGRAM/SQ. METER, Q2WK
     Dates: start: 202010, end: 202106
  2. LEUCOVORIN CALCIUM [Suspect]
     Active Substance: LEUCOVORIN CALCIUM
     Indication: Colorectal cancer metastatic
     Dosage: 200 MILLIGRAM/SQ. METER, DAY 1- DAY 2
     Dates: start: 202010
  3. FLUOROURACIL [Suspect]
     Active Substance: FLUOROURACIL
     Indication: Colorectal cancer metastatic
     Dosage: 2400 MILLIGRAM/SQ. METER
     Route: 042
  4. FLUOROURACIL [Suspect]
     Active Substance: FLUOROURACIL
     Dosage: 400 MILLIGRAM/SQ. METER, BOLUS DAY 1, DAY 2
     Route: 042
     Dates: start: 202010
  5. VECTIBIX [Suspect]
     Active Substance: PANITUMUMAB
     Indication: Colorectal cancer metastatic
     Dosage: UNK UNK, Q2WK (80 % OF THE DOSE)
     Route: 042
  6. VECTIBIX [Suspect]
     Active Substance: PANITUMUMAB
     Dosage: UNK UNK, Q2WK?6 MG/KG
     Route: 042
     Dates: start: 202010, end: 202012
  7. VECTIBIX [Suspect]
     Active Substance: PANITUMUMAB
     Dosage: 3.6 MILLIGRAM/KILOGRAM, Q2WK
     Route: 042
     Dates: start: 202106
  8. VECTIBIX [Suspect]
     Active Substance: PANITUMUMAB
     Dosage: UNK UNK, Q2WK (60 % OF THE DOSE)
     Route: 042
     Dates: start: 202103
  9. XERACALM A.D [Concomitant]
     Indication: Prophylaxis
     Dosage: UNK
  10. DOXYCYCLINE [Concomitant]
     Active Substance: DOXYCYCLINE
     Indication: Prophylaxis
     Dosage: 200 MILLIGRAM, QD
  11. Baneocin [Concomitant]
     Indication: Prophylaxis
     Dosage: UNK?FORM OF ADMIN OINTMENT
  12. PALONOSETRON [Concomitant]
     Active Substance: PALONOSETRON
     Indication: Antiemetic supportive care
     Dosage: UNK

REACTIONS (2)
  - Dermatitis acneiform [None]
  - Nephropathy toxic [None]

NARRATIVE: CASE EVENT DATE: 20201101
